FAERS Safety Report 4457247-8 (Version None)
Quarter: 2004Q3

REPORT INFORMATION
  Report Type: 
  Country: None (occurrence: None)
  Receive Date: 20040921
  Receipt Date: 20040908
  Transmission Date: 20050211
  Serious: Yes (Disabling, Other)
  Sender: FDA-Public Use
  Company Number: 2004049431

PATIENT
  Age: 46 Year
  Sex: Male
  Weight: 104.3273 kg

DRUGS (3)
  1. GEODON [Suspect]
     Indication: SCHIZOPHRENIA, PARANOID TYPE
     Dates: start: 20010901, end: 20030901
  2. LORAZEPAM [Concomitant]
  3. SERTRALINE HCL [Suspect]

REACTIONS (6)
  - ANXIETY [None]
  - CARDIAC ARREST [None]
  - CARDIAC DISORDER [None]
  - FALL [None]
  - LIMB INJURY [None]
  - LOSS OF CONSCIOUSNESS [None]
